FAERS Safety Report 4774951-2 (Version None)
Quarter: 2005Q3

REPORT INFORMATION
  Report Type: 
  Country: None (occurrence: None)
  Receive Date: 20050920
  Receipt Date: 20050911
  Transmission Date: 20060218
  Serious: Yes (Life-Threatening, Hospitalization)
  Sender: FDA-Public Use
  Company Number: 129-CTHAL-04050263

PATIENT
  Age: 78 Year
  Sex: Female
  Weight: 27.2158 kg

DRUGS (7)
  1. THALIDOMIDE/PLACEBO (CAPSULES) [Suspect]
     Indication: MULTIPLE MYELOMA
     Dosage: 50 MG, DAILY, ORAL
     Route: 048
     Dates: start: 20040302, end: 20040509
  2. DEXAMETHASONE [Suspect]
     Indication: MULTIPLE MYELOMA
     Dosage: 40 MG, X4DAYS 3 TIMES MONTYLY, ORAL
     Route: 048
     Dates: start: 20040506, end: 20040509
  3. EPOETIN (EPOETIN ALFA) [Concomitant]
  4. METOPROLOL TARTRATE [Concomitant]
  5. GLIMEPIRIDE [Concomitant]
  6. HYDROXYZINE [Concomitant]
  7. FENTANYL [Concomitant]

REACTIONS (24)
  - ABDOMINAL PAIN [None]
  - ABDOMINAL TENDERNESS [None]
  - ABSCESS [None]
  - ACTIVATED PARTIAL THROMBOPLASTIN TIME SHORTENED [None]
  - ASTHENIA [None]
  - BLOOD FIBRINOGEN INCREASED [None]
  - BLOOD POTASSIUM DECREASED [None]
  - CULTURE URINE POSITIVE [None]
  - DIVERTICULAR PERFORATION [None]
  - DIVERTICULUM INTESTINAL [None]
  - GASTROINTESTINAL PERFORATION [None]
  - GENERAL PHYSICAL CONDITION ABNORMAL [None]
  - HAEMATOCRIT DECREASED [None]
  - HAEMOGLOBIN DECREASED [None]
  - HEMIPARESIS [None]
  - INTESTINAL PROLAPSE [None]
  - LUNG CREPITATION [None]
  - PERITONEAL ADHESIONS [None]
  - PERITONEAL DISORDER [None]
  - PERITONITIS [None]
  - PLATELET COUNT INCREASED [None]
  - PROTEUS INFECTION [None]
  - RED BLOOD CELL COUNT DECREASED [None]
  - WOUND COMPLICATION [None]
